FAERS Safety Report 24621029 (Version 5)
Quarter: 2025Q1

REPORT INFORMATION
  Report Type: Spontaneous
  Country: US (occurrence: US)
  Receive Date: 20241114
  Receipt Date: 20250109
  Transmission Date: 20250409
  Serious: No
  Sender: PFIZER
  Company Number: US-PFIZER INC-202400292855

PATIENT
  Age: 12 Year
  Sex: Male
  Weight: 30.7 kg

DRUGS (1)
  1. GENOTROPIN [Suspect]
     Active Substance: SOMATROPIN
     Indication: Noonan syndrome
     Dosage: 1.6 MG, DAILY
     Route: 058
     Dates: start: 20230713

REACTIONS (4)
  - Device use issue [Unknown]
  - Device breakage [Unknown]
  - Device leakage [Unknown]
  - Off label use [Unknown]
